FAERS Safety Report 5093697-7 (Version None)
Quarter: 2006Q3

REPORT INFORMATION
  Report Type: 
  Country: None (occurrence: None)
  Receive Date: 20060831
  Receipt Date: 20060825
  Transmission Date: 20061208
  Serious: Yes (Hospitalization)
  Sender: FDA-Public Use
  Company Number: PHEH2006US10966

PATIENT
  Age: 81 Year
  Sex: Female

DRUGS (3)
  1. MIACALCIN [Suspect]
  2. AMBIEN [Concomitant]
     Indication: INSOMNIA
  3. DARVOCET [Concomitant]

REACTIONS (3)
  - BRADYCARDIA [None]
  - CARDIAC PACEMAKER INSERTION [None]
  - TRANSIENT ISCHAEMIC ATTACK [None]
